FAERS Safety Report 8512635-5 (Version None)
Quarter: 2012Q3

REPORT INFORMATION
  Report Type: 
  Country: None (occurrence: None)
  Receive Date: 20120716
  Receipt Date: 20120703
  Transmission Date: 20120928
  Serious: Yes (Hospitalization)
  Sender: FDA-Public Use
  Company Number: AT-VERTEX PHARMACEUTICALS INC.-000000000000001063

PATIENT
  Sex: Male

DRUGS (8)
  1. PEGASYS [Concomitant]
     Dosage: DOSAGE FORM: UNSPECIFIED
     Route: 065
     Dates: start: 20120401
  2. PEGASYS [Concomitant]
     Route: 065
     Dates: start: 20120508
  3. PEGASYS [Concomitant]
     Dosage: DOSAGE FORM: UNSPECIFIED
     Route: 065
     Dates: start: 20120227
  4. INCIVO [Suspect]
     Indication: HEPATITIS C
     Dosage: DOSAGE FORM: TABLET, AT WEEK 12 TREATMENT WAS TERMINATED
     Dates: start: 20120116, end: 20120401
  5. PEGASYS [Concomitant]
     Indication: HEPATITIS C
     Dosage: DOSAGE FORM: UNSPECIFIED
     Route: 065
     Dates: start: 20120116, end: 20120220
  6. PEGASYS [Concomitant]
     Route: 065
     Dates: start: 20120401, end: 20120401
  7. COPEGUS [Concomitant]
     Indication: HEPATITIS C
     Dosage: DOSAGE FORM: UNSPECIFIED
     Route: 065
     Dates: start: 20120116, end: 20120401
  8. COPEGUS [Concomitant]
     Route: 065
     Dates: start: 20120508

REACTIONS (3)
  - INTERSTITIAL LUNG DISEASE [None]
  - PLATELET COUNT DECREASED [None]
  - TREMOR [None]
